FAERS Safety Report 9703351 (Version 3)
Quarter: 2013Q4

REPORT INFORMATION
  Report Type: Report from Study
  Country: DE (occurrence: DE)
  Receive Date: 20131122
  Receipt Date: 20131210
  Transmission Date: 20140711
  Serious: Yes (Other)
  Sender: FDA-Public Use
  Company Number: PHHY2013DE131104

PATIENT
  Age: 48 Year
  Sex: Male
  Weight: 103 kg

DRUGS (5)
  1. FTY 720 [Suspect]
     Indication: MULTIPLE SCLEROSIS
     Dosage: 0.5 MG, QD
     Route: 048
     Dates: start: 20130415, end: 20131107
  2. CO-DIOVAN [Concomitant]
     Indication: BLOOD PRESSURE INCREASED
     Dosage: 320/12.5 MG, DAILY
     Route: 048
     Dates: start: 20110912
  3. OMEP [Concomitant]
     Indication: GASTRITIS
  4. SIMVAHEXAL [Concomitant]
     Indication: HYPERCHOLESTEROLAEMIA
     Dosage: 80 MG, UNK
     Route: 048
     Dates: start: 2006
  5. TALVOSILEN [Concomitant]
     Indication: HEADACHE
     Dates: start: 2008

REACTIONS (8)
  - Macular oedema [Recovering/Resolving]
  - Diplopia [Recovering/Resolving]
  - Vision blurred [Recovering/Resolving]
  - Blood pressure increased [Unknown]
  - JC virus test positive [Unknown]
  - Hypoaesthesia [Unknown]
  - Alanine aminotransferase increased [Unknown]
  - Gamma-glutamyltransferase increased [Unknown]
